FAERS Safety Report 8136481-X (Version None)
Quarter: 2012Q1

REPORT INFORMATION
  Report Type: 
  Country: None (occurrence: None)
  Receive Date: 20120103
  Receipt Date: 20110823
  Transmission Date: 20120608
  Serious: No
  Sender: FDA-Public Use
  Company Number: AE-2011-001083

PATIENT
  Age: 59 Year
  Sex: Male
  Weight: 87.0906 kg

DRUGS (3)
  1. LOSARTAN KCL (LOSARTAN POTASSIUM) [Concomitant]
  2. INCIVEK [Suspect]
     Dosage: 2250 MG (750 MG,1 IN 8 HR), ORAL
     Route: 048
     Dates: start: 20110819, end: 20110819
  3. RIBAVIRIN [Concomitant]

REACTIONS (3)
  - HEART RATE INCREASED [None]
  - PALPITATIONS [None]
  - BLOOD PRESSURE INCREASED [None]
